FAERS Safety Report 5380622-4 (Version None)
Quarter: 2007Q2

REPORT INFORMATION
  Report Type: 
  Country: None (occurrence: None)
  Receive Date: 20070530
  Receipt Date: 20070301
  Transmission Date: 20071010
  Serious: No
  Sender: FDA-Public Use
  Company Number: 2007PV030927

PATIENT
  Age: 62 Year
  Sex: Female

DRUGS (7)
  1. BYETTA [Suspect]
     Indication: DIABETES MELLITUS NON-INSULIN-DEPENDENT
     Dosage: 5 MCG; QAM; SC; 10 MCG; QPM; SC; 10 MCG; BID;SC; 5 MCG; BID;SC
     Route: 058
     Dates: end: 20070101
  2. BYETTA [Suspect]
     Indication: DIABETES MELLITUS NON-INSULIN-DEPENDENT
     Dosage: 5 MCG; QAM; SC; 10 MCG; QPM; SC; 10 MCG; BID;SC; 5 MCG; BID;SC
     Route: 058
     Dates: start: 20060101
  3. BYETTA [Suspect]
     Indication: DIABETES MELLITUS NON-INSULIN-DEPENDENT
     Dosage: 5 MCG; QAM; SC; 10 MCG; QPM; SC; 10 MCG; BID;SC; 5 MCG; BID;SC
     Route: 058
     Dates: start: 20070101
  4. BYETTA [Suspect]
     Indication: DIABETES MELLITUS NON-INSULIN-DEPENDENT
     Dosage: 5 MCG; QAM; SC; 10 MCG; QPM; SC; 10 MCG; BID;SC; 5 MCG; BID;SC
     Route: 058
     Dates: start: 20070101
  5. AVANDIA [Concomitant]
  6. METFORMIN HCL [Concomitant]
  7. GLYBURIDE [Concomitant]

REACTIONS (3)
  - NAUSEA [None]
  - SENSATION OF FOREIGN BODY [None]
  - VOMITING [None]
